FAERS Safety Report 6764914-X (Version None)
Quarter: 2010Q2

REPORT INFORMATION
  Report Type: 
  Country: None (occurrence: None)
  Receive Date: 20100610
  Receipt Date: 20100601
  Transmission Date: 20101027
  Serious: Yes (Death, Hospitalization)
  Sender: FDA-Public Use
  Company Number: DE-AMGEN-QUU410748

PATIENT
  Sex: Female

DRUGS (9)
  1. ENBREL [Suspect]
     Indication: RHEUMATOID ARTHRITIS
     Route: 058
     Dates: start: 20050401, end: 20060701
  2. ENBREL [Suspect]
     Route: 058
     Dates: start: 20060801, end: 20090401
  3. ENBREL [Suspect]
     Route: 058
     Dates: start: 20090501, end: 20090701
  4. LANTAREL [Suspect]
     Indication: RHEUMATOID ARTHRITIS
     Dosage: UNKNOWN
     Route: 065
     Dates: start: 20060301, end: 20061001
  5. PREDNISOLONE [Concomitant]
     Route: 048
  6. CALCIMAGON [Concomitant]
  7. METOPROLOL SUCCINATE [Concomitant]
  8. ALENDRONIC ACID [Concomitant]
  9. TAMBOCOR [Concomitant]

REACTIONS (2)
  - CEREBRAL HAEMORRHAGE [None]
  - CEREBRAL INFARCTION [None]
